FAERS Safety Report 24163517 (Version 1)
Quarter: 2024Q3

REPORT INFORMATION
  Report Type: Spontaneous
  Country: IT (occurrence: IT)
  Receive Date: 20240801
  Receipt Date: 20240801
  Transmission Date: 20241017
  Serious: Yes (Other)
  Sender: GLAXOSMITHKLINE
  Company Number: IT-GLAXOSMITHKLINE-IT2024EME093310

PATIENT

DRUGS (1)
  1. ALBUTEROL [Suspect]
     Active Substance: ALBUTEROL
     Indication: Respiratory syncytial virus infection
     Dosage: UNK

REACTIONS (7)
  - Obliterative bronchiolitis [Unknown]
  - MacLeod^s syndrome [Unknown]
  - Wheezing [Not Recovered/Not Resolved]
  - Lung opacity [Unknown]
  - Mediastinal shift [Unknown]
  - Lung hyperinflation [Unknown]
  - Therapy non-responder [Unknown]
